FAERS Safety Report 23445985 (Version 1)
Quarter: 2024Q1

REPORT INFORMATION
  Report Type: Spontaneous
  Country: US (occurrence: US)
  Receive Date: 20240126
  Receipt Date: 20240126
  Transmission Date: 20240410
  Serious: No
  Sender: FDA-Public Use
  Company Number: US-TARSUS PHARMACEUTICALS-TSP-US-2023-000042

PATIENT
  Age: 91 Year
  Sex: Female

DRUGS (6)
  1. XDEMVY [Suspect]
     Active Substance: LOTILANER
     Indication: Demodex blepharitis
     Dosage: 1 DROP (INTO BOTH EYES FOR 6 WEEKS)
     Route: 047
     Dates: start: 20231026, end: 20231103
  2. ATORVASTATIN [Concomitant]
     Active Substance: ATORVASTATIN
     Indication: Product used for unknown indication
     Dosage: UNK
     Route: 065
  3. ACYCLOVIR [Concomitant]
     Active Substance: ACYCLOVIR
     Indication: Product used for unknown indication
     Dosage: UNK
     Route: 065
  4. TRIAMTERENE [Concomitant]
     Active Substance: TRIAMTERENE
     Indication: Product used for unknown indication
     Dosage: UNK
     Route: 065
  5. AMLODIPINE [Concomitant]
     Active Substance: AMLODIPINE BESYLATE
     Indication: Product used for unknown indication
     Dosage: UNK
     Route: 065
  6. ALENDRONATE [Concomitant]
     Active Substance: ALENDRONATE SODIUM
     Indication: Product used for unknown indication
     Dosage: UNK
     Route: 065

REACTIONS (7)
  - Ocular hyperaemia [Recovered/Resolved]
  - Lacrimation increased [Recovered/Resolved]
  - Skin irritation [Recovered/Resolved]
  - Facial pain [Not Recovered/Not Resolved]
  - Vision blurred [Recovered/Resolved]
  - Photophobia [Recovered/Resolved]
  - Adverse event [Recovered/Resolved]

NARRATIVE: CASE EVENT DATE: 20231029
